FAERS Safety Report 22258835 (Version 3)
Quarter: 2024Q3

REPORT INFORMATION
  Report Type: Report from Study
  Country: US (occurrence: US)
  Receive Date: 20230427
  Receipt Date: 20240925
  Transmission Date: 20241017
  Serious: No
  Sender: GLAXOSMITHKLINE
  Company Number: US-GLAXOSMITHKLINE-US2023AMR059972

PATIENT
  Sex: Female

DRUGS (4)
  1. NIRAPARIB [Suspect]
     Active Substance: NIRAPARIB
     Indication: Ovarian cancer
     Dosage: UNK (2 OR 3 CAPSULES TWO TIMES DAILY)
     Dates: start: 202109
  2. NIRAPARIB [Suspect]
     Active Substance: NIRAPARIB
     Dosage: 100 MG, QD
     Dates: start: 20220606
  3. FARXIGA [Concomitant]
     Active Substance: DAPAGLIFLOZIN PROPANEDIOL
     Indication: Product used for unknown indication
     Dosage: UNK
  4. FARXIGA [Concomitant]
     Active Substance: DAPAGLIFLOZIN PROPANEDIOL
     Dosage: UNK, QD (DOSE DECREASED)

REACTIONS (6)
  - Dizziness [Unknown]
  - Blood pressure decreased [Unknown]
  - Blood pressure increased [Not Recovered/Not Resolved]
  - Drug intolerance [Unknown]
  - Product dose omission issue [Unknown]
  - Off label use [Unknown]
